FAERS Safety Report 4763725-4 (Version None)
Quarter: 2005Q3

REPORT INFORMATION
  Report Type: 
  Country: None (occurrence: None)
  Receive Date: 20050908
  Receipt Date: 20050902
  Transmission Date: 20060218
  Serious: Yes (Hospitalization)
  Sender: FDA-Public Use
  Company Number: FR-ROCHE-416486

PATIENT
  Age: 73 Year
  Sex: Male
  Weight: 73 kg

DRUGS (6)
  1. ROCEPHIN [Suspect]
     Route: 030
     Dates: start: 20050613
  2. ASASANTINE [Concomitant]
     Dosage: LONG TERM TREATMENT.
  3. ZOLADEX [Concomitant]
  4. AMAREL [Concomitant]
  5. LOXEN [Concomitant]
  6. FENOFIBRATE [Concomitant]

REACTIONS (2)
  - PURPURA [None]
  - THROMBOCYTOPENIA [None]
